FAERS Safety Report 12615661 (Version 2)
Quarter: 2016Q3

REPORT INFORMATION
  Report Type: Other
  Country: None (occurrence: CN)
  Receive Date: 20160802
  Receipt Date: 20160809
  Transmission Date: 20161109
  Serious: Yes (Hospitalization, Other)
  Sender: FDA-Public Use
  Company Number: CN-MERCK KGAA-1055768

PATIENT

DRUGS (1)
  1. NOVOTHYROX [Suspect]
     Active Substance: LEVOTHYROXINE SODIUM

REACTIONS (6)
  - Blood glucose increased [None]
  - Live birth [None]
  - Hepatic function abnormal [None]
  - Gallbladder disorder [None]
  - Polycystic ovaries [None]
  - Maternal exposure during pregnancy [None]
